FAERS Safety Report 6773522-6 (Version None)
Quarter: 2010Q2

REPORT INFORMATION
  Report Type: 
  Country: None (occurrence: None)
  Receive Date: 20100616
  Receipt Date: 20100601
  Transmission Date: 20101027
  Serious: Yes (Hospitalization)
  Sender: FDA-Public Use
  Company Number: FR-ABBOTT-10P-056-0648037-00

PATIENT
  Age: 43 Year
  Sex: Female

DRUGS (4)
  1. LEVOTHYROXINE SODIUM [Suspect]
     Indication: DRUG USE FOR UNKNOWN INDICATION
     Route: 048
  2. DEPAKENE [Suspect]
     Indication: PARTIAL SEIZURES
     Route: 048
  3. AMOXICILLIN AND CLAVULANATE POTASSIUM [Suspect]
     Indication: INFLUENZA
     Dosage: POWDER FOR ORAL SOLUTION
     Route: 048
     Dates: end: 20100419
  4. RHINOFLUIMUCIL [Suspect]
     Indication: INFLUENZA
     Route: 045
     Dates: end: 20100419

REACTIONS (2)
  - EPILEPSY [None]
  - HYPONATRAEMIA [None]
